FAERS Safety Report 5381385-9 (Version None)
Quarter: 2007Q3

REPORT INFORMATION
  Report Type: 
  Country: None (occurrence: None)
  Receive Date: 20070709
  Receipt Date: 20070628
  Transmission Date: 20080115
  Serious: Yes (Hospitalization)
  Sender: FDA-Public Use
  Company Number: US-KINGPHARMUSA00001-K200700822

PATIENT

DRUGS (12)
  1. ALTACE [Interacting]
     Dosage: 1.25 MG, QD
     Route: 048
     Dates: start: 20060615, end: 20070518
  2. LASILIX /00032601/ [Suspect]
     Dosage: 20 MG, QD
     Route: 048
     Dates: start: 20060615, end: 20070518
  3. ALDACTONE [Suspect]
     Dosage: 50 MG, QD
     Route: 048
     Dates: start: 20060615, end: 20070518
  4. COZAAR [Suspect]
     Dosage: 100 MG, QD
     Route: 048
     Dates: start: 20060615, end: 20070518
  5. LYSANXIA [Concomitant]
     Dosage: 20 MG, UNK
     Route: 048
     Dates: start: 20060615, end: 20070518
  6. LYSANXIA [Concomitant]
     Dosage: 40 MG, QD
     Route: 048
  7. ZOCOR [Concomitant]
     Dosage: 20 MG, UNK
  8. KARDEGIC  /00002703/ [Concomitant]
     Dosage: 75 MG, UNK
     Route: 048
  9. TRINIPATCH [Concomitant]
     Dosage: 10 MG, UNK
     Route: 023
  10. ATHYMIL [Concomitant]
     Dosage: 10 MG, UNK
     Route: 048
  11. LACTULOSE [Concomitant]
  12. EFFERALGAN /00020001/ [Concomitant]

REACTIONS (8)
  - ANOREXIA [None]
  - ASTHENIA [None]
  - CREATININE RENAL CLEARANCE DECREASED [None]
  - DIZZINESS [None]
  - DRUG INTERACTION POTENTIATION [None]
  - GENERAL PHYSICAL HEALTH DETERIORATION [None]
  - MALAISE [None]
  - RENAL FAILURE ACUTE [None]
